FAERS Safety Report 19657936 (Version 1)
Quarter: 2021Q3

REPORT INFORMATION
  Report Type: Spontaneous
  Country: BI (occurrence: US)
  Receive Date: 20210804
  Receipt Date: 20210804
  Transmission Date: 20211014
  Serious: Yes (Hospitalization)
  Sender: FDA-Public Use
  Company Number: BI-B.I. PHARMACEUTICALS,INC./RIDGEFIELD-2021-BI-119455

PATIENT
  Age: 71 Year
  Sex: Female

DRUGS (1)
  1. JARDIANCE [Suspect]
     Active Substance: EMPAGLIFLOZIN
     Indication: PRODUCT USED FOR UNKNOWN INDICATION
     Route: 048
     Dates: start: 20210404, end: 20210704

REACTIONS (2)
  - Gastrooesophageal reflux disease [Unknown]
  - Chest pain [Unknown]
